FAERS Safety Report 4629523-7 (Version None)
Quarter: 2005Q2

REPORT INFORMATION
  Report Type: 
  Country: None (occurrence: None)
  Receive Date: 20050405
  Receipt Date: 20050323
  Transmission Date: 20051028
  Serious: Yes (Other)
  Sender: FDA-Public Use
  Company Number: 213453

PATIENT
  Age: 65 Year
  Sex: Male
  Weight: 67 kg

DRUGS (15)
  1. AVASTIN [Suspect]
     Indication: GASTRIC CANCER
     Dosage: 5 MG/KG, DAYS 1+15, INTRAVENOUS
     Route: 042
     Dates: start: 20050215, end: 20050302
  2. DOCETAXEL (DOCETAXEL) [Suspect]
     Indication: GASTRIC CANCER
     Dosage: 35 MG/M2, DAYS 1, 8, 15, INTRAVENOUS
     Route: 042
     Dates: start: 20050215, end: 20050302
  3. DEXAMETHASONE [Concomitant]
  4. COMPAZINE [Concomitant]
  5. DECADRON [Concomitant]
  6. DILAUDID [Concomitant]
  7. DTO (OPIUM) [Concomitant]
  8. ATIVAN [Concomitant]
  9. EFFEXOR [Concomitant]
  10. IRON (IRON NOS) [Concomitant]
  11. LACTULOSE [Concomitant]
  12. MYCOSTATIN [Concomitant]
  13. OXYCONTIN [Concomitant]
  14. RITALIN [Concomitant]
  15. COLACE (DOCUSATE SODIUM) [Concomitant]

REACTIONS (6)
  - CEREBRAL INFARCTION [None]
  - GRAND MAL CONVULSION [None]
  - HYPOAESTHESIA [None]
  - LOSS OF CONSCIOUSNESS [None]
  - MYOCARDIAL INFARCTION [None]
  - PNEUMONIA [None]
